FAERS Safety Report 10042351 (Version 1)
Quarter: 2014Q1

REPORT INFORMATION
  Report Type: Spontaneous
  Country: US (occurrence: US)
  Receive Date: 20140327
  Receipt Date: 20140327
  Transmission Date: 20141002
  Serious: No
  Sender: FDA-Public Use
  Company Number: US-009507513-1403USA008397

PATIENT
  Age: 55 Year
  Sex: Female

DRUGS (2)
  1. OXYTROL FOR WOMEN [Suspect]
     Indication: PRODUCT USED FOR UNKNOWN INDICATION
     Dosage: UNK, UNKNOWN
     Route: 062
     Dates: start: 201402, end: 201402
  2. OXYTROL FOR WOMEN [Suspect]
     Dosage: 1 DF, UNKNOWN
     Route: 062
     Dates: start: 20140301, end: 20140303

REACTIONS (4)
  - Dermatitis contact [Unknown]
  - Application site irritation [Unknown]
  - Application site erythema [Unknown]
  - Application site pruritus [Not Recovered/Not Resolved]
